FAERS Safety Report 9191588 (Version 7)
Quarter: 2014Q1

REPORT INFORMATION
  Report Type: Report from Study
  Country: US (occurrence: US)
  Receive Date: 20130326
  Receipt Date: 20140128
  Transmission Date: 20141002
  Serious: Yes (Life-Threatening, Hospitalization, Other)
  Sender: FDA-Public Use
  Company Number: US-ACTELION-A-US2013-79860

PATIENT
  Age: 53 Year
  Sex: Female

DRUGS (4)
  1. TRACLEER [Suspect]
     Indication: PULMONARY ARTERIAL HYPERTENSION
     Dosage: 62.5 MG, BID
     Route: 048
     Dates: start: 20130212, end: 20130311
  2. TRACLEER [Suspect]
     Dosage: 125 MG, BID
     Route: 048
     Dates: start: 20130312, end: 20140113
  3. TYVASO [Suspect]
  4. ADCIRCA [Concomitant]

REACTIONS (16)
  - Hepatic encephalopathy [Unknown]
  - Renal failure acute [Unknown]
  - Chronic hepatic failure [Not Recovered/Not Resolved]
  - Hypotension [Unknown]
  - Ascites [Recovered/Resolved with Sequelae]
  - Productive cough [Recovered/Resolved with Sequelae]
  - Abdominal cavity drainage [Recovered/Resolved with Sequelae]
  - Fluid retention [Unknown]
  - Abdominal pain [Recovered/Resolved with Sequelae]
  - Conjunctivitis [Unknown]
  - Injury [Unknown]
  - Contusion [Unknown]
  - Joint swelling [Unknown]
  - Cough [Unknown]
  - Vomiting [Unknown]
  - Headache [Recovering/Resolving]
